FAERS Safety Report 8444236-1 (Version None)
Quarter: 2012Q2

REPORT INFORMATION
  Report Type: 
  Country: None (occurrence: None)
  Receive Date: 20120611
  Receipt Date: 20120504
  Transmission Date: 20120825
  Serious: Yes (Death)
  Sender: FDA-Public Use
  Company Number: DKLU1081849

PATIENT
  Age: 19 Month
  Sex: Female

DRUGS (2)
  1. SABRIL [Suspect]
     Indication: INFANTILE SPASMS
     Dosage: 600 MG MILLIGRAM(S), 2 IN 1 D, ORAL
     Route: 048
     Dates: start: 20110828
  2. KEPPRA [Concomitant]

REACTIONS (1)
  - DEATH [None]
